FAERS Safety Report 14107352 (Version 1)
Quarter: 2017Q4

REPORT INFORMATION
  Report Type: Spontaneous
  Country: US (occurrence: US)
  Receive Date: 20171018
  Receipt Date: 20171018
  Transmission Date: 20180321
  Serious: No
  Sender: FDA-Public Use
  Company Number: US-BAUSCH-BL-2017-003681

PATIENT
  Age: 53 Year
  Sex: Male
  Weight: 77.18 kg

DRUGS (3)
  1. BUPROPION XL [Suspect]
     Active Substance: BUPROPION
     Indication: POST-TRAUMATIC STRESS DISORDER
  2. BUPROPION XL [Suspect]
     Active Substance: BUPROPION
     Indication: DEPRESSION
  3. BUPROPION XL [Suspect]
     Active Substance: BUPROPION
     Indication: ANXIETY
     Route: 048
     Dates: start: 2016

REACTIONS (1)
  - Tremor [Recovering/Resolving]

NARRATIVE: CASE EVENT DATE: 201701
